FAERS Safety Report 25133568 (Version 1)
Quarter: 2025Q1

REPORT INFORMATION
  Report Type: Spontaneous
  Country: CN (occurrence: CN)
  Receive Date: 20250328
  Receipt Date: 20250328
  Transmission Date: 20250409
  Serious: Yes (Other)
  Sender: ALEXION PHARMACEUTICALS
  Company Number: CN-ASTRAZENECA-202503CHN019717CN

PATIENT
  Age: 56 Year
  Weight: 75 kg

DRUGS (2)
  1. DAPAGLIFLOZIN [Suspect]
     Active Substance: DAPAGLIFLOZIN
     Indication: Diabetes mellitus
     Dosage: 10 MILLIGRAM, QD
  2. Sanjin panax [Concomitant]
     Indication: Urinary tract infection
     Dosage: 3 DOSAGE FORM, TID

REACTIONS (1)
  - Urinary tract infection [Recovering/Resolving]
